FAERS Safety Report 9565638 (Version 4)
Quarter: 2013Q4

REPORT INFORMATION
  Report Type: Spontaneous
  Country: VE (occurrence: VE)
  Receive Date: 20130930
  Receipt Date: 20131030
  Transmission Date: 20140711
  Serious: Yes (Death, Hospitalization)
  Sender: FDA-Public Use
  Company Number: VE-BAYER-2013-117572

PATIENT
  Age: 33 Year
  Sex: Female
  Weight: 70 kg

DRUGS (2)
  1. ULTRAVIST [Suspect]
     Indication: COMPUTERISED TOMOGRAM HEAD
     Dosage: 40 ML, ONCE
     Route: 042
     Dates: start: 20130926, end: 20130926
  2. ULTRAVIST [Suspect]
     Indication: HEADACHE

REACTIONS (7)
  - Hypotonia [None]
  - Cardiac arrest [Fatal]
  - Tonic convulsion [None]
  - Cough [None]
  - Ruptured cerebral aneurysm [Fatal]
  - Subarachnoid haemorrhage [Fatal]
  - Central nervous system infection [Fatal]
